FAERS Safety Report 25817292 (Version 2)
Quarter: 2025Q3

REPORT INFORMATION
  Report Type: Spontaneous
  Country: US (occurrence: US)
  Receive Date: 20250918
  Receipt Date: 20250930
  Transmission Date: 20251020
  Serious: No
  Sender: PFIZER
  Company Number: US-PFIZER INC-202500183635

PATIENT
  Age: 67 Year
  Sex: Female
  Weight: 65.306 kg

DRUGS (4)
  1. PAXLOVID [Suspect]
     Active Substance: NIRMATRELVIR\RITONAVIR
     Indication: COVID-19 treatment
     Dosage: [NIRMATRELVIR 300 MG]/[RITONAVIR 100 MG]; 2X/DAY
     Route: 048
     Dates: start: 20250906, end: 20250910
  2. CRESTOR [Concomitant]
     Active Substance: ROSUVASTATIN CALCIUM
     Indication: Low density lipoprotein increased
     Dosage: 2.5 MG, DAILY
  3. EZETIMIBE [Concomitant]
     Active Substance: EZETIMIBE
     Indication: Low density lipoprotein increased
     Dosage: 10 MG, DAILY
  4. TERBINAFINE [Concomitant]
     Active Substance: TERBINAFINE
     Indication: Onychomycosis
     Dosage: 250 UNK, DAILY

REACTIONS (2)
  - COVID-19 [Recovering/Resolving]
  - Disease recurrence [Recovering/Resolving]

NARRATIVE: CASE EVENT DATE: 20250915
